FAERS Safety Report 23635249 (Version 1)
Quarter: 2024Q1

REPORT INFORMATION
  Report Type: Spontaneous
  Country: US (occurrence: None)
  Receive Date: 20240315
  Receipt Date: 20240315
  Transmission Date: 20240410
  Serious: Yes (Hospitalization)
  Sender: FDA-Public Use
  Company Number: 2024A058587

PATIENT
  Age: 61 Year

DRUGS (7)
  1. FARXIGA [Suspect]
     Active Substance: DAPAGLIFLOZIN PROPANEDIOL
     Route: 048
     Dates: start: 20230101
  2. ASPIRIN [Concomitant]
     Active Substance: ASPIRIN
  3. ARMOUR THYROID [Concomitant]
     Active Substance: THYROID, PORCINE
     Indication: Hypothyroidism
  4. SPIRONOLACTONE [Concomitant]
     Active Substance: SPIRONOLACTONE
     Dosage: 1-25MG PER DAY
  5. TORSEMIDE [Concomitant]
     Active Substance: TORSEMIDE
     Dosage: 1-20MG AND 2-20MG, ALTERNATE DAYS.
  6. METOPROLOL [Concomitant]
     Active Substance: METOPROLOL
     Dosage: 1-25MG
  7. MAGNESIUM [Concomitant]
     Active Substance: MAGNESIUM

REACTIONS (7)
  - Fall [Unknown]
  - Spinal fracture [Unknown]
  - Cardiac failure [Unknown]
  - Dizziness [Unknown]
  - Underweight [Unknown]
  - Malnutrition [Unknown]
  - Skinfold measurement [Unknown]

NARRATIVE: CASE EVENT DATE: 20080101
